FAERS Safety Report 4492413-7 (Version None)
Quarter: 2004Q4

REPORT INFORMATION
  Report Type: 
  Country: None (occurrence: None)
  Receive Date: 20041102
  Receipt Date: 20041102
  Transmission Date: 20050328
  Serious: Yes (Hospitalization)
  Sender: FDA-Public Use
  Company Number: None

PATIENT
  Age: 62 Year
  Sex: Female

DRUGS (9)
  1. TACROLIMUS [Suspect]
     Indication: IMMUNOSUPPRESSION
     Dosage: 7 MG BID ORAL
     Route: 048
     Dates: start: 20030917, end: 20031228
  2. PREDNISONE [Concomitant]
  3. MYCOPHENOLATE MOFETIL [Concomitant]
  4. TACROLIUM [Concomitant]
  5. VALCYTE [Concomitant]
  6. FAMOTIDINE [Concomitant]
  7. METOCLOPRAMIDE [Concomitant]
  8. ALPRAZOLAM [Concomitant]
  9. ATORVASTATIN CALCIUM [Concomitant]

REACTIONS (1)
  - CONVULSION [None]
